FAERS Safety Report 5795527-4 (Version None)
Quarter: 2008Q2

REPORT INFORMATION
  Report Type: 
  Country: None (occurrence: None)
  Receive Date: 20080630
  Receipt Date: 20080617
  Transmission Date: 20081010
  Serious: Yes (Hospitalization)
  Sender: FDA-Public Use
  Company Number: PHHY2008JP11439

PATIENT
  Age: 44 Year
  Sex: Male

DRUGS (4)
  1. LAMISIL [Suspect]
     Indication: TINEA INFECTION
     Dosage: UNK
     Route: 048
     Dates: start: 20080610, end: 20080613
  2. LEVOFLOXACIN [Concomitant]
     Dosage: UNK
     Dates: start: 20080613
  3. MEIACT [Concomitant]
     Dosage: UNK
     Dates: start: 20080613
  4. ROCEPHIN [Concomitant]
     Dosage: UNK
     Dates: start: 20080613

REACTIONS (3)
  - PLATELET COUNT DECREASED [None]
  - PYREXIA [None]
  - WHITE BLOOD CELL COUNT DECREASED [None]
